FAERS Safety Report 8295305-0 (Version None)
Quarter: 2012Q2

REPORT INFORMATION
  Report Type: 
  Country: None (occurrence: None)
  Receive Date: 20120418
  Receipt Date: 20120330
  Transmission Date: 20120825
  Serious: Yes (Other)
  Sender: FDA-Public Use
  Company Number: IN-BAXTER-2012BAX001884

PATIENT
  Age: 65 Year
  Sex: Male

DRUGS (3)
  1. DIANEAL [Suspect]
     Indication: PERITONEAL DIALYSIS
     Route: 033
     Dates: start: 20120310
  2. DIANEAL PD-2 W/ DEXTROSE 2.5% [Suspect]
     Dates: start: 20120310
  3. DIANEAL PD-2 W/ DEXTROSE 2.5% [Suspect]
     Indication: PERITONEAL DIALYSIS
     Route: 033
     Dates: start: 20120310

REACTIONS (3)
  - CONSTIPATION [None]
  - INFECTIOUS PERITONITIS [None]
  - PERITONEAL DIALYSIS COMPLICATION [None]
